FAERS Safety Report 15894196 (Version 1)
Quarter: 2019Q1

REPORT INFORMATION
  Report Type: Spontaneous
  Country: SE (occurrence: SE)
  Receive Date: 20190131
  Receipt Date: 20190131
  Transmission Date: 20190417
  Serious: Yes (Life-Threatening)
  Sender: FDA-Public Use
  Company Number: SE-TEVA-2019-SE-1005612

PATIENT
  Age: 34 Year
  Sex: Female
  Weight: 54 kg

DRUGS (6)
  1. VENLAFAXINE [Suspect]
     Active Substance: VENLAFAXINE HYDROCHLORIDE
     Indication: DEPRESSION
     Dosage: SUCCESSIVE TAPERING FROM 150 MG TO 37.5 MG WITH 10 DAYS AT THE RESPECTIVE DOSE.
     Route: 065
     Dates: start: 201705
  2. LAMOTRIGINE. [Concomitant]
     Active Substance: LAMOTRIGINE
     Dates: start: 201810
  3. IMOVANE [Concomitant]
     Active Substance: ZOPICLONE
  4. ANTABUS [Concomitant]
     Active Substance: DISULFIRAM
     Dates: start: 201812
  5. ATARAX [Concomitant]
     Active Substance: HYDROXYZINE HYDROCHLORIDE
  6. YASMINELLE [Concomitant]
     Active Substance: DROSPIRENONE

REACTIONS (8)
  - Akathisia [Recovering/Resolving]
  - Tenderness [Recovering/Resolving]
  - Mood swings [Recovering/Resolving]
  - Dizziness [Recovering/Resolving]
  - Self-injurious ideation [Recovering/Resolving]
  - Photophobia [Recovering/Resolving]
  - Paraesthesia [Recovering/Resolving]
  - Drug withdrawal syndrome [Recovering/Resolving]

NARRATIVE: CASE EVENT DATE: 201812
